FAERS Safety Report 5317924-3 (Version None)
Quarter: 2007Q2

REPORT INFORMATION
  Report Type: 
  Country: None (occurrence: None)
  Receive Date: 20070507
  Receipt Date: 20070430
  Transmission Date: 20071010
  Serious: Yes (Hospitalization)
  Sender: FDA-Public Use
  Company Number: D0053126A

PATIENT
  Age: 76 Year
  Sex: Female
  Weight: 65 kg

DRUGS (7)
  1. ZOFRAN [Suspect]
     Indication: PROPHYLAXIS OF NAUSEA AND VOMITING
     Dosage: 8MG PER DAY
     Route: 048
     Dates: start: 20070226, end: 20070301
  2. TEMOZOLOMID [Suspect]
     Indication: MALIGNANT GLIOMA
     Dosage: 160MG PER DAY
     Route: 048
     Dates: start: 20070226, end: 20070301
  3. FORTECORTIN [Suspect]
     Dosage: 2MG PER DAY
     Route: 065
  4. TEMOZOLOMID [Concomitant]
     Dosage: 160MG PER DAY
     Route: 048
     Dates: start: 20070212, end: 20070217
  5. ZOFRAN [Concomitant]
     Dosage: 8MG PER DAY
     Route: 048
     Dates: start: 20070212, end: 20070217
  6. CEFASEL [Concomitant]
     Route: 065
  7. BOSWELLIA SERRATA [Concomitant]
     Route: 048

REACTIONS (1)
  - RASH PRURITIC [None]
